FAERS Safety Report 8335950-7 (Version None)
Quarter: 2012Q2

REPORT INFORMATION
  Report Type: 
  Country: None (occurrence: None)
  Receive Date: 20120504
  Receipt Date: 20120430
  Transmission Date: 20120825
  Serious: No
  Sender: FDA-Public Use
  Company Number: US-PFIZER INC-2012089343

PATIENT
  Sex: Female
  Weight: 112 kg

DRUGS (16)
  1. LEVOTHYROXINE [Concomitant]
     Indication: THYROID DISORDER
     Dosage: 0.175 MG, DAILY
  2. MULTI-VITAMINS [Concomitant]
     Dosage: UNK, DAILY
  3. PARAFON FORTE DSC [Concomitant]
     Indication: ARTHRITIS
     Dosage: 500 MG, 2X/DAY
  4. PREDNISONE [Concomitant]
     Indication: SWELLING
  5. FOLIC ACID [Concomitant]
     Indication: ARTHRITIS
     Dosage: 400 MG TWO AND HALF TABLETS ONCE DAILY
  6. PREDNISONE [Concomitant]
     Indication: ARTHRITIS
     Dosage: 5 MG, 2X/DAY
  7. BONIVA [Concomitant]
     Indication: ARTHRITIS
     Dosage: 150 MG, MONTHLY
  8. VIMOVO [Concomitant]
     Indication: ARTHRITIS
     Dosage: 500/20 MG, 2X/DAY
  9. ZOLOFT [Suspect]
     Indication: DEPRESSION
     Dosage: 50 MG, 2X/DAY
  10. BONIVA [Concomitant]
     Indication: BONE LOSS
  11. LYRICA [Suspect]
     Indication: FIBROMYALGIA
     Dosage: 300 MG, DAILY AT BEDTIME
     Route: 048
     Dates: start: 20060101
  12. LYRICA [Suspect]
     Indication: ARTHRITIS
  13. VITAMIN D [Concomitant]
     Indication: ARTHRITIS
     Dosage: UNK
  14. HUMIRA [Concomitant]
     Indication: ARTHRITIS
     Dosage: 40MG /0.8ML, 2X/MONTH
  15. OXYCONTIN [Suspect]
     Indication: BACK PAIN
     Dosage: 30 MG, DAILY
  16. METHOTREXATE [Concomitant]
     Indication: ARTHRITIS
     Dosage: 2.5 MG, 2X/WEEK

REACTIONS (3)
  - BACK PAIN [None]
  - PAIN [None]
  - DRUG INEFFECTIVE [None]
